FAERS Safety Report 18628478 (Version 1)
Quarter: 2020Q4

REPORT INFORMATION
  Report Type: Report from Study
  Country: None (occurrence: US)
  Receive Date: 20201217
  Receipt Date: 20201217
  Transmission Date: 20210114
  Serious: Yes (Hospitalization, Other)
  Sender: FDA-Public Use
  Company Number: US-ABBVIE-20K-163-3687840-00

PATIENT
  Age: 50 Year
  Sex: Female
  Weight: 111.23 kg

DRUGS (15)
  1. GABAPENTIN. [Concomitant]
     Active Substance: GABAPENTIN
     Indication: NEUROPATHY PERIPHERAL
  2. METOCLOPRAMIDE. [Concomitant]
     Active Substance: METOCLOPRAMIDE
     Indication: GASTRIC DISORDER
  3. HYDROCHLOROTHIAZIDE. [Concomitant]
     Active Substance: HYDROCHLOROTHIAZIDE
     Indication: SWELLING
  4. PANTOPRAZOLE [Concomitant]
     Active Substance: PANTOPRAZOLE
     Indication: GASTROOESOPHAGEAL REFLUX DISEASE
  5. VITAMIN D NOS [Concomitant]
     Active Substance: VITAMIN D NOS
     Indication: PRODUCT USED FOR UNKNOWN INDICATION
  6. BRINZOLAMIDE [Concomitant]
     Active Substance: BRINZOLAMIDE
     Indication: EYE DISORDER
  7. PROMETHAZINE [Concomitant]
     Active Substance: PROMETHAZINE HYDROCHLORIDE
     Indication: NAUSEA
  8. TIMOLOL. [Concomitant]
     Active Substance: TIMOLOL
     Indication: EYE DISORDER
  9. FAMOTIDINE. [Concomitant]
     Active Substance: FAMOTIDINE
     Indication: EYE DISORDER
  10. HUMIRA [Suspect]
     Active Substance: ADALIMUMAB
     Indication: INTERSTITIAL LUNG DISEASE
     Dosage: CITRATE FREE
     Route: 058
     Dates: start: 20201210
  11. PANTOPRAZOLE [Concomitant]
     Active Substance: PANTOPRAZOLE
     Indication: DYSPEPSIA
  12. LATANAPROST/TIMOLOL [Concomitant]
     Active Substance: LATANOPROST\TIMOLOL
     Indication: EYE DISORDER
  13. HUMULIN C [Concomitant]
     Indication: DIABETES MELLITUS
  14. SIMVASTATIN. [Concomitant]
     Active Substance: SIMVASTATIN
     Indication: BLOOD CHOLESTEROL INCREASED
  15. HUMIRA [Suspect]
     Active Substance: ADALIMUMAB
     Indication: RHEUMATOID ARTHRITIS
     Dosage: DRUG START DATE 6 TO 8 MONTHS AGO
     Route: 058
     Dates: start: 202004, end: 2020

REACTIONS (13)
  - Arthropathy [Not Recovered/Not Resolved]
  - Pruritus [Recovered/Resolved]
  - Lung disorder [Unknown]
  - Inflammation [Unknown]
  - Visual impairment [Unknown]
  - Hypersensitivity [Recovered/Resolved]
  - Product use in unapproved indication [Unknown]
  - Interstitial lung disease [Not Recovered/Not Resolved]
  - Product storage error [Unknown]
  - Pain [Unknown]
  - Device issue [Recovered/Resolved]
  - Condition aggravated [Not Recovered/Not Resolved]
  - Pain in extremity [Not Recovered/Not Resolved]

NARRATIVE: CASE EVENT DATE: 2020
